FAERS Safety Report 7432849-5 (Version None)
Quarter: 2011Q2

REPORT INFORMATION
  Report Type: 
  Country: None (occurrence: None)
  Receive Date: 20110422
  Receipt Date: 20110407
  Transmission Date: 20111010
  Serious: No
  Sender: FDA-Public Use
  Company Number: US-B.I. PHARMACEUTICALS,INC./RIDGEFIELD-2011-BP-10362BP

PATIENT
  Sex: Female

DRUGS (6)
  1. METHOCARBAMOL [Concomitant]
     Indication: MUSCLE SPASMS
  2. FOLIC ACID [Concomitant]
     Indication: ARTHRITIS
  3. SPIRIVA [Suspect]
     Indication: CHRONIC OBSTRUCTIVE PULMONARY DISEASE
     Dosage: 18 MCG
     Route: 055
     Dates: start: 20110215, end: 20110404
  4. METHOTREXATE [Concomitant]
     Indication: ARTHRITIS
  5. PREDNISONE [Concomitant]
     Indication: ARTHRITIS
     Dosage: 5 MG
     Dates: start: 19900101
  6. OXYCODONE HCL [Concomitant]
     Indication: PAIN

REACTIONS (6)
  - TONGUE DISORDER [None]
  - PHARYNGEAL OEDEMA [None]
  - OROPHARYNGEAL PAIN [None]
  - SWOLLEN TONGUE [None]
  - EPISTAXIS [None]
  - DYSPHAGIA [None]
